FAERS Safety Report 8259070-5 (Version None)
Quarter: 2012Q2

REPORT INFORMATION
  Report Type: 
  Country: None (occurrence: None)
  Receive Date: 20120404
  Receipt Date: 20120327
  Transmission Date: 20120825
  Serious: Yes (Hospitalization)
  Sender: FDA-Public Use
  Company Number: NL-ROCHE-803722

PATIENT
  Sex: Male

DRUGS (7)
  1. VEMURAFENIB [Suspect]
     Dosage: PATIENT WITHDRAWN FROM STUDY ON 07/MAR/2012
     Route: 048
  2. VEMURAFENIB [Suspect]
     Indication: METASTATIC MALIGNANT MELANOMA
     Route: 048
     Dates: start: 20110824, end: 20110921
  3. ASCAL [Concomitant]
     Dates: start: 20080201
  4. PERINDOPRIL ERBUMINE [Concomitant]
  5. ATORVASTATIN [Concomitant]
  6. PANTOPRAZOLE [Concomitant]
  7. METOCLOPRAMIDE [Concomitant]

REACTIONS (1)
  - PYREXIA [None]
